FAERS Safety Report 21519288 (Version 1)
Quarter: 2022Q4

REPORT INFORMATION
  Report Type: Other
  Country: CN (occurrence: CN)
  Receive Date: 20221028
  Receipt Date: 20221028
  Transmission Date: 20230113
  Serious: Yes (Hospitalization, Other)
  Sender: FDA-Public Use
  Company Number: CN-GE HEALTHCARE-2022CSU007551

PATIENT
  Age: 71 Year
  Sex: Female
  Weight: 55 kg

DRUGS (3)
  1. OMNIPAQUE [Suspect]
     Active Substance: IOHEXOL
     Indication: Stent placement
     Dosage: 100 ML, SINGLE
     Route: 042
     Dates: start: 20221013, end: 20221013
  2. OMNIPAQUE [Suspect]
     Active Substance: IOHEXOL
     Indication: Cerebral infarction
  3. OMNIPAQUE [Suspect]
     Active Substance: IOHEXOL
     Indication: Muscular weakness

REACTIONS (4)
  - Condition aggravated [Not Recovered/Not Resolved]
  - Epilepsy [Not Recovered/Not Resolved]
  - Incoherent [Not Recovered/Not Resolved]
  - Confusional state [Not Recovered/Not Resolved]

NARRATIVE: CASE EVENT DATE: 20221013
